FAERS Safety Report 6842054-9 (Version None)
Quarter: 2010Q3

REPORT INFORMATION
  Report Type: 
  Country: None (occurrence: None)
  Receive Date: 20100714
  Receipt Date: 20070717
  Transmission Date: 20110219
  Serious: No
  Sender: FDA-Public Use
  Company Number: US-PFIZER INC-2007060625

PATIENT
  Sex: Male
  Weight: 86.3 kg

DRUGS (2)
  1. CHANTIX [Suspect]
     Indication: SMOKING CESSATION THERAPY
     Dates: start: 20070717
  2. PERCOCET [Interacting]
     Indication: JOINT INJURY
     Dates: start: 20070717

REACTIONS (3)
  - COLD SWEAT [None]
  - DRUG INTERACTION [None]
  - NAUSEA [None]
